FAERS Safety Report 7925421-1 (Version None)
Quarter: 2011Q4

REPORT INFORMATION
  Report Type: 
  Country: None (occurrence: None)
  Receive Date: 20111118
  Receipt Date: 20110406
  Transmission Date: 20120403
  Serious: No
  Sender: FDA-Public Use
  Company Number: US-AMGEN-USASP2011013393

PATIENT
  Age: 40 Year
  Sex: Male

DRUGS (1)
  1. ENBREL [Suspect]
     Indication: PSORIASIS
     Dosage: 50 MG, QWK
     Dates: start: 20101104

REACTIONS (6)
  - INJURY [None]
  - BACK DISORDER [None]
  - SKIN IRRITATION [None]
  - PAIN [None]
  - LOCAL SWELLING [None]
  - ERYTHEMA [None]
